FAERS Safety Report 6392447-1 (Version None)
Quarter: 2009Q4

REPORT INFORMATION
  Report Type: 
  Country: None (occurrence: None)
  Receive Date: 20091007
  Receipt Date: 20090924
  Transmission Date: 20100525
  Serious: Yes (Hospitalization, Other)
  Sender: FDA-Public Use
  Company Number: US-PFIZER INC-2009254424

PATIENT
  Sex: Female
  Weight: 93 kg

DRUGS (6)
  1. NEURONTIN [Suspect]
     Indication: NEUROPATHY PERIPHERAL
     Dosage: UNK
     Dates: start: 20000101, end: 20090730
  2. TRAZODONE HCL [Suspect]
     Indication: SLEEP DISORDER
     Dosage: UNK
  3. REBIF [Suspect]
     Indication: MULTIPLE SCLEROSIS
     Dosage: 44MCG, 3 IN 1 WEEKS
     Route: 058
     Dates: start: 20090625
  4. KLONOPIN [Suspect]
     Indication: TREMOR
     Dosage: UNK
  5. EFFEXOR [Suspect]
     Indication: HOT FLUSH
     Dosage: UNK
  6. TRAMADOL [Suspect]
     Indication: PAIN
     Dosage: UNK

REACTIONS (3)
  - ACCIDENTAL OVERDOSE [None]
  - CONVULSION [None]
  - DRUG WITHDRAWAL SYNDROME [None]
